FAERS Safety Report 8572922-1 (Version None)
Quarter: 2012Q3

REPORT INFORMATION
  Report Type: 
  Country: None (occurrence: None)
  Receive Date: 20120806
  Receipt Date: 20120727
  Transmission Date: 20120928
  Serious: Yes (Death, Hospitalization)
  Sender: FDA-Public Use
  Company Number: FR-EISAI INC-E7389-01708-CLI-FR

PATIENT
  Sex: Female
  Weight: 52 kg

DRUGS (2)
  1. EPIRUBICIN HYDROCHLORIDE [Suspect]
     Indication: BREAST CANCER
     Route: 041
     Dates: start: 20110928, end: 20111108
  2. SODIUM CHLORIDE [Concomitant]

REACTIONS (5)
  - NEUTROPENIA [None]
  - DEHYDRATION [None]
  - MUCOSAL INFLAMMATION [None]
  - DECREASED APPETITE [None]
  - HEPATIC ENCEPHALOPATHY [None]
